FAERS Safety Report 10995499 (Version 4)
Quarter: 2015Q2

REPORT INFORMATION
  Report Type: Report from Study
  Country: NL (occurrence: NL)
  Receive Date: 20150407
  Receipt Date: 20150520
  Transmission Date: 20150821
  Serious: Yes (Hospitalization, Other)
  Sender: FDA-Public Use
  Company Number: NL-ABBVIE-15P-114-1371513-00

PATIENT
  Age: 66 Year
  Sex: Male

DRUGS (1)
  1. DUODOPA [Suspect]
     Active Substance: CARBIDOPA\LEVODOPA
     Indication: PARKINSON^S DISEASE
     Dosage: 20/5 MG/ML; SEE NARRATIVE
     Route: 050
     Dates: start: 20101013

REACTIONS (4)
  - Fall [Unknown]
  - Parkinsonian gait [Unknown]
  - Humerus fracture [Recovered/Resolved with Sequelae]
  - Arthropathy [Unknown]

NARRATIVE: CASE EVENT DATE: 20150403
